FAERS Safety Report 9025683 (Version 4)
Quarter: 2014Q1

REPORT INFORMATION
  Report Type: Report from Study
  Country: US (occurrence: US)
  Receive Date: 20130123
  Receipt Date: 20140110
  Transmission Date: 20141002
  Serious: Yes (Hospitalization)
  Sender: FDA-Public Use
  Company Number: US-BIOGENIDEC-2013BI005666

PATIENT
  Age: 49 Year
  Sex: Female
  Weight: 92 kg

DRUGS (16)
  1. TYSABRI [Suspect]
     Indication: MULTIPLE SCLEROSIS
     Route: 042
     Dates: start: 20090708
  2. ASPIRIN [Concomitant]
     Route: 048
  3. LIPITOR [Concomitant]
     Route: 048
  4. PLAVIX [Concomitant]
     Route: 048
  5. CYMBALTA [Concomitant]
     Route: 048
  6. FLONASE [Concomitant]
     Route: 055
  7. HYTONE [Concomitant]
     Route: 061
  8. IBUPROFEN [Concomitant]
     Route: 048
  9. LISINOPRIL [Concomitant]
     Route: 048
  10. MAGNESIUM OXIDE [Concomitant]
     Route: 048
  11. LOPRESSOR [Concomitant]
     Route: 048
  12. OMEPRAZOLE [Concomitant]
     Route: 048
  13. PERCOCET [Concomitant]
     Route: 048
  14. TRAZODONE [Concomitant]
     Route: 048
  15. XANAX [Concomitant]
     Route: 048
  16. AMITIZA [Concomitant]
     Route: 048

REACTIONS (4)
  - Acute coronary syndrome [Recovered/Resolved with Sequelae]
  - Coronary artery stenosis [Recovered/Resolved with Sequelae]
  - Chest pain [Recovered/Resolved]
  - Pulmonary hypertension [Recovered/Resolved]
